FAERS Safety Report 5749624-X (Version None)
Quarter: 2008Q2

REPORT INFORMATION
  Report Type: 
  Country: None (occurrence: None)
  Receive Date: 20080527
  Receipt Date: 20080519
  Transmission Date: 20081010
  Serious: Yes (Other)
  Sender: FDA-Public Use
  Company Number: GB-MERCK-0805GBR00104

PATIENT
  Sex: Male

DRUGS (3)
  1. PROSCAR [Suspect]
     Route: 048
  2. PROSCAR [Suspect]
     Route: 048
  3. [THERAPY UNSPECIFIED] [Concomitant]
     Route: 065

REACTIONS (2)
  - OVERDOSE [None]
  - PROSTATE CANCER [None]
